FAERS Safety Report 5682587-4 (Version None)
Quarter: 2008Q1

REPORT INFORMATION
  Report Type: 
  Country: None (occurrence: None)
  Receive Date: 20080327
  Receipt Date: 20080206
  Transmission Date: 20080703
  Serious: Yes (Other)
  Sender: FDA-Public Use
  Company Number: US-BRISTOL-MYERS SQUIBB COMPANY-14021943

PATIENT
  Age: 71 Year
  Sex: Female

DRUGS (5)
  1. ORENCIA [Suspect]
     Indication: RHEUMATOID ARTHRITIS
     Route: 042
     Dates: start: 20070510, end: 20071018
  2. ATACAND HCT [Concomitant]
     Dosage: 1 DOSAGE FORM = 32/12.5 MG
     Route: 048
     Dates: start: 20060930
  3. PREDNISONE TAB [Concomitant]
  4. TRAMADOL HCL [Concomitant]
     Dosage: 50 MG TABLET, 1/2-1 AS NEEDED.
  5. TYLENOL (CAPLET) [Concomitant]

REACTIONS (1)
  - LYMPHOMA [None]
